FAERS Safety Report 5619137-4 (Version None)
Quarter: 2008Q1

REPORT INFORMATION
  Report Type: 
  Country: None (occurrence: None)
  Receive Date: 20080207
  Receipt Date: 20080130
  Transmission Date: 20080703
  Serious: Yes (Hospitalization, Other)
  Sender: FDA-Public Use
  Company Number: ES-ABBOTT-08P-144-0436623-00

PATIENT
  Age: 40 Year
  Sex: Male

DRUGS (5)
  1. SECALIP [Suspect]
     Indication: HYPERCHOLESTEROLAEMIA
     Route: 048
     Dates: start: 20071207, end: 20071217
  2. HEPATITIS B SURFACE ANTIGEN [Concomitant]
     Indication: IMMUNISATION
     Dosage: 20 MCG/1ML
     Route: 050
     Dates: start: 20071210, end: 20071210
  3. INFLUENZA VIRUS VACCINE POLYVALENT [Concomitant]
     Indication: IMMUNISATION
     Route: 050
     Dates: start: 20071210, end: 20071210
  4. INFLUENZA VIRUS VACCINE POLYVALENT [Concomitant]
     Dates: start: 20071210, end: 20071210
  5. INFLUENZA VIRUS VACCINE POLYVALENT [Concomitant]
     Dates: start: 20071210, end: 20071210

REACTIONS (4)
  - CONGENITAL CYSTIC KIDNEY DISEASE [None]
  - HEPATIC LESION [None]
  - RENAL FAILURE CHRONIC [None]
  - RHABDOMYOLYSIS [None]
